FAERS Safety Report 5915978-4 (Version None)
Quarter: 2008Q4

REPORT INFORMATION
  Report Type: 
  Country: None (occurrence: None)
  Receive Date: 20081013
  Receipt Date: 20081001
  Transmission Date: 20090506
  Serious: Yes (Other)
  Sender: FDA-Public Use
  Company Number: JP-JNJFOC-20080405736

PATIENT
  Sex: Female
  Weight: 45 kg

DRUGS (5)
  1. REMICADE [Suspect]
     Dosage: 6TH DOSE
     Route: 042
  2. REMICADE [Suspect]
     Dosage: 5TH DOSE
     Route: 042
  3. REMICADE [Suspect]
     Dosage: DOSES 2 TO 4
     Route: 042
  4. REMICADE [Suspect]
     Indication: RHEUMATOID ARTHRITIS
     Dosage: 1ST DOSE
     Route: 042
  5. ANTIRHEUMATIC AGENT [Concomitant]
     Indication: DRUG USE FOR UNKNOWN INDICATION

REACTIONS (1)
  - BILIARY CIRRHOSIS PRIMARY [None]
